FAERS Safety Report 5693039-X (Version None)
Quarter: 2008Q2

REPORT INFORMATION
  Report Type: 
  Country: None (occurrence: None)
  Receive Date: 20080402
  Receipt Date: 20080402
  Transmission Date: 20081010
  Serious: Yes (Other)
  Sender: FDA-Public Use
  Company Number: None

PATIENT
  Sex: Male
  Weight: 126.5536 kg

DRUGS (1)
  1. MULTIHANCE [Suspect]
     Indication: SCAN WITH CONTRAST
     Dosage: 20ML ONCE IV BOLUS
     Route: 040
     Dates: start: 20080325, end: 20080325

REACTIONS (2)
  - HEADACHE [None]
  - VOMITING [None]
